FAERS Safety Report 5030647-3 (Version None)
Quarter: 2006Q2

REPORT INFORMATION
  Report Type: 
  Country: None (occurrence: None)
  Receive Date: 20060615
  Receipt Date: 20060530
  Transmission Date: 20061013
  Serious: Yes (Other)
  Sender: FDA-Public Use
  Company Number: DSA_28242_2006

PATIENT
  Age: 74 Year
  Sex: Male

DRUGS (10)
  1. CARDIZEM [Suspect]
     Dosage: DF UNK UNK
     Route: 065
  2. LIPITOR [Suspect]
     Indication: BLOOD CHOLESTEROL
     Dosage: 60 MG Q DAY UNK
     Route: 065
  3. LIPITOR [Suspect]
     Indication: BLOOD CHOLESTEROL
     Dosage: 20 MG Q DAY UNK
     Route: 065
  4. LIPITOR [Suspect]
     Indication: BLOOD CHOLESTEROL
     Dosage: 30 MG Q DAY UNK
     Route: 065
  5. LIPITOR [Suspect]
     Indication: BLOOD CHOLESTEROL
     Dosage: 40 MG Q DAY UNK
     Route: 065
  6. FLOMAX [Concomitant]
  7. NEXIUM [Concomitant]
  8. HYZAAR [Concomitant]
  9. PROSCAR [Concomitant]
  10. AMOXICILLIN [Concomitant]

REACTIONS (7)
  - AORTIC ANEURYSM [None]
  - ARTHROPATHY [None]
  - BLOOD POTASSIUM DECREASED [None]
  - HEPATIC ENZYME INCREASED [None]
  - JOINT EFFUSION [None]
  - OEDEMA PERIPHERAL [None]
  - PROSTATE CANCER [None]
